FAERS Safety Report 4690119-2 (Version None)
Quarter: 2005Q2

REPORT INFORMATION
  Report Type: 
  Country: None (occurrence: None)
  Receive Date: 20050613
  Receipt Date: 20050530
  Transmission Date: 20051028
  Serious: Yes (Death, Hospitalization)
  Sender: FDA-Public Use
  Company Number: 2005BH000040

PATIENT
  Age: 84 Year
  Sex: Female

DRUGS (1)
  1. EXTRANEAL [Suspect]
     Indication: AZOTAEMIA
     Dosage: 2 L

REACTIONS (1)
  - PERITONITIS SCLEROSING [None]
